FAERS Safety Report 25595976 (Version 2)
Quarter: 2025Q3

REPORT INFORMATION
  Report Type: Spontaneous
  Country: MY (occurrence: MY)
  Receive Date: 20250723
  Receipt Date: 20250729
  Transmission Date: 20251020
  Serious: Yes (Life-Threatening)
  Sender: BOEHRINGER INGELHEIM
  Company Number: MY-BoehringerIngelheim-2025-BI-084665

PATIENT
  Age: 36 Year
  Sex: Female

DRUGS (2)
  1. LINAGLIPTIN\METFORMIN HYDROCHLORIDE [Suspect]
     Active Substance: LINAGLIPTIN\METFORMIN HYDROCHLORIDE
     Indication: Diabetes mellitus
     Dosage: 1 DOSAGE FORM (2.5MG/1000MG), DOSE INTERVAL AT 12 HOURS
     Dates: start: 20210101
  2. NAPROXEN [Concomitant]
     Active Substance: NAPROXEN
     Indication: Analgesic therapy
     Dates: start: 20240617, end: 20240701

REACTIONS (2)
  - Euglycaemic diabetic ketoacidosis [Recovered/Resolved]
  - Hypernatraemia [Recovered/Resolved]
